FAERS Safety Report 17766555 (Version 4)
Quarter: 2020Q3

REPORT INFORMATION
  Report Type: Spontaneous
  Country: US (occurrence: US)
  Receive Date: 20200511
  Receipt Date: 20200612
  Transmission Date: 20201104
  Serious: No
  Sender: FDA-Public Use
  Company Number: US-FRESENIUS KABI-FK202004465

PATIENT
  Age: 35 Year
  Sex: Female
  Weight: 62 kg

DRUGS (17)
  1. MONTELUKAST [Concomitant]
     Active Substance: MONTELUKAST SODIUM
     Indication: PREMEDICATION
     Route: 065
     Dates: start: 20191110
  2. OLANZAPINE. [Concomitant]
     Active Substance: OLANZAPINE
     Indication: PROPHYLAXIS
     Route: 065
     Dates: start: 20191112
  3. PARACETAMOL [Concomitant]
     Active Substance: ACETAMINOPHEN
     Indication: PROPHYLAXIS
     Route: 065
     Dates: start: 20191113
  4. CARBOPLATIN (MANUFACTURER UNKNOWN) [Suspect]
     Active Substance: CARBOPLATIN
     Dosage: 1 DOSAGE FORM (4 AUC), 1Q3W
     Route: 041
     Dates: start: 20200219
  5. OLANZAPINE. [Concomitant]
     Active Substance: OLANZAPINE
     Indication: NAUSEA
  6. DOCUSATE SODIUM. [Concomitant]
     Active Substance: DOCUSATE SODIUM
     Indication: CONSTIPATION
     Route: 065
     Dates: start: 20191112
  7. MACROGOL 400 [Concomitant]
     Active Substance: POLYETHYLENE GLYCOL 400
     Indication: PROPHYLAXIS
     Route: 065
     Dates: start: 20191113
  8. ONDANSETRON [Concomitant]
     Active Substance: ONDANSETRON
     Indication: PROPHYLAXIS
     Route: 065
     Dates: start: 20191205
  9. THIAMINE. [Concomitant]
     Active Substance: THIAMINE
     Indication: SUPPLEMENTATION THERAPY
     Route: 065
     Dates: start: 20200301
  10. MACROGOL 3350 [Concomitant]
     Active Substance: POLYETHYLENE GLYCOL 3350
     Indication: CONSTIPATION
     Route: 065
     Dates: start: 20190110
  11. CARBOPLATIN (MANUFACTURER UNKNOWN) [Suspect]
     Active Substance: CARBOPLATIN
     Indication: CERVIX CARCINOMA
     Dosage: 1 DOSAGE FORM (5 AUC), 1Q3W
     Route: 041
     Dates: start: 20191113, end: 20200129
  12. TISOTUMAB VEDOTIN. [Suspect]
     Active Substance: TISOTUMAB VEDOTIN
     Indication: CERVIX CARCINOMA
     Dosage: 1Q3W
     Route: 041
     Dates: start: 20191113, end: 20200408
  13. LORAZEPAM. [Concomitant]
     Active Substance: LORAZEPAM
     Indication: NAUSEA
  14. DEXAMETHASONE. [Concomitant]
     Active Substance: DEXAMETHASONE
     Indication: PROPHYLAXIS
     Route: 065
     Dates: start: 20191205
  15. HYPROMELLOSE [Concomitant]
     Active Substance: HYPROMELLOSES
     Indication: PRODUCT USED FOR UNKNOWN INDICATION
     Route: 065
     Dates: start: 20190121
  16. ERGOCALCIFEROL. [Concomitant]
     Active Substance: ERGOCALCIFEROL
     Indication: SUPPLEMENTATION THERAPY
     Route: 065
     Dates: start: 20141101
  17. LORAZEPAM. [Concomitant]
     Active Substance: LORAZEPAM
     Indication: ANXIETY
     Route: 065
     Dates: start: 20190401

REACTIONS (1)
  - Conjunctivitis [Recovered/Resolved]

NARRATIVE: CASE EVENT DATE: 20200415
